FAERS Safety Report 8890900 (Version 2)
Quarter: 2012Q4

REPORT INFORMATION
  Report Type: 
  Country: JP (occurrence: JP)
  Receive Date: 20121106
  Receipt Date: 20121121
  Transmission Date: 20130627
  Serious: Yes (Hospitalization, Other)
  Sender: FDA-Public Use
  Company Number: JP-ELI_LILLY_AND_COMPANY-JP201210008199

PATIENT
  Age: 78 Year
  Sex: Female

DRUGS (2)
  1. ZYPREXA [Suspect]
     Dosage: 10 mg, UNK
     Route: 048
     Dates: end: 20121021
  2. MIRTAZAPINE [Concomitant]
     Dosage: 45 mg, UNK
     Route: 048
     Dates: end: 20121021

REACTIONS (4)
  - Hypoglycaemia [Recovering/Resolving]
  - Dehydration [Unknown]
  - Loss of consciousness [Unknown]
  - Decreased appetite [Unknown]
